FAERS Safety Report 7263880-0 (Version None)
Quarter: 2011Q1

REPORT INFORMATION
  Report Type: 
  Country: None (occurrence: None)
  Receive Date: 20110130
  Receipt Date: 20101206
  Transmission Date: 20110831
  Serious: No
  Sender: FDA-Public Use
  Company Number: US-ABBOTT-10P-163-0690119-00

PATIENT
  Sex: Male
  Weight: 72.64 kg

DRUGS (6)
  1. VENOFER [Concomitant]
     Indication: HAEMOGLOBIN DECREASED
     Dosage: INFUSION AS NEEDED BASED ON HEMOGLOBIN LEVEL.
     Dates: start: 20090101
  2. ANDROGEL [Concomitant]
     Indication: BLOOD TESTOSTERONE DECREASED
     Route: 062
     Dates: start: 20090101
  3. LIALDA [Concomitant]
     Indication: COLITIS ULCERATIVE
     Dates: start: 20091001
  4. HUMIRA [Suspect]
     Indication: COLITIS ULCERATIVE
  5. HUMIRA [Suspect]
     Indication: CROHN'S DISEASE
     Route: 058
     Dates: start: 20101007
  6. LEXAPRO [Concomitant]
     Indication: DEPRESSION

REACTIONS (10)
  - HAEMATOCHEZIA [None]
  - DIARRHOEA [None]
  - FATIGUE [None]
  - CHEST DISCOMFORT [None]
  - CONSTIPATION [None]
  - MUSCULOSKELETAL CHEST PAIN [None]
  - HAEMOGLOBIN DECREASED [None]
  - FLATULENCE [None]
  - ERUCTATION [None]
  - DECREASED APPETITE [None]
